FAERS Safety Report 24940059 (Version 1)
Quarter: 2025Q1

REPORT INFORMATION
  Report Type: Spontaneous
  Country: BR (occurrence: BR)
  Receive Date: 20250207
  Receipt Date: 20250207
  Transmission Date: 20250409
  Serious: Yes (Death, Hospitalization, Other)
  Sender: IPCA
  Company Number: BR-IPCA LABORATORIES LIMITED-IPC-2025-BR-000291

PATIENT

DRUGS (2)
  1. VALPROATE SODIUM [Suspect]
     Active Substance: VALPROATE SODIUM
     Indication: Product used for unknown indication
     Route: 048
  2. QUETIAPINE [Suspect]
     Active Substance: QUETIAPINE
     Indication: Product used for unknown indication
     Route: 048

REACTIONS (16)
  - Cardio-respiratory arrest [Fatal]
  - Hypovolaemic shock [Unknown]
  - Arrhythmia [Unknown]
  - Pneumonia aspiration [Unknown]
  - Multiple organ dysfunction syndrome [Unknown]
  - Suicide attempt [Unknown]
  - Shock [Unknown]
  - Cyanosis [Unknown]
  - Mydriasis [Unknown]
  - Electrolyte imbalance [Unknown]
  - Coagulopathy [Unknown]
  - Metabolic acidosis [Unknown]
  - Leukocytosis [Unknown]
  - Blood lactic acid increased [Unknown]
  - Intentional overdose [Unknown]
  - Toxicity to various agents [Unknown]
